FAERS Safety Report 8784804 (Version 3)
Quarter: 2013Q1

REPORT INFORMATION
  Report Type: Report from Study
  Country: IT (occurrence: IT)
  Receive Date: 20120914
  Receipt Date: 20130124
  Transmission Date: 20140127
  Serious: Yes (Hospitalization)
  Sender: FDA-Public Use
  Company Number: IT-JNJFOC-20120904495

PATIENT
  Age: 16 Year
  Sex: Female
  Weight: 45.4 kg

DRUGS (7)
  1. REMICADE [Suspect]
     Indication: CROHN^S DISEASE
     Route: 042
     Dates: start: 20090622
  2. REMICADE [Suspect]
     Indication: CROHN^S DISEASE
     Route: 042
     Dates: start: 20110802
  3. REMICADE [Suspect]
     Indication: CROHN^S DISEASE
     Route: 042
     Dates: start: 20111122
  4. 5-ASA [Concomitant]
     Route: 048
  5. 5-ASA [Concomitant]
     Route: 054
  6. ANTIBIOTICS [Concomitant]
     Indication: CROHN^S DISEASE
     Route: 048
  7. PREDNISONE [Concomitant]

REACTIONS (3)
  - Large intestinal stenosis [Recovered/Resolved with Sequelae]
  - Rectal stenosis [Recovered/Resolved with Sequelae]
  - Intestinal stenosis [Recovered/Resolved with Sequelae]
